FAERS Safety Report 5635807-6 (Version None)
Quarter: 2008Q1

REPORT INFORMATION
  Report Type: 
  Country: None (occurrence: None)
  Receive Date: 20080221
  Receipt Date: 20080213
  Transmission Date: 20080703
  Serious: Yes (Hospitalization)
  Sender: FDA-Public Use
  Company Number: 130-C5013-08020763

PATIENT
  Sex: Female

DRUGS (2)
  1. CC-5013 (LENALIDOMIDE) (CAPSULES) [Suspect]
     Indication: MULTIPLE MYELOMA
     Dosage: 25 MG, DAILY, ORAL
     Route: 048
     Dates: end: 20080201
  2. DEXAMETHASONE TAB [Concomitant]

REACTIONS (1)
  - HAEMOLYTIC ANAEMIA [None]
